FAERS Safety Report 6882131-X (Version None)
Quarter: 2010Q3

REPORT INFORMATION
  Report Type: 
  Country: None (occurrence: None)
  Receive Date: 20100729
  Receipt Date: 20100715
  Transmission Date: 20110219
  Serious: Yes (Other)
  Sender: FDA-Public Use
  Company Number: US-ELI_LILLY_AND_COMPANY-US201007004549

PATIENT
  Sex: Female

DRUGS (4)
  1. ZYPREXA [Suspect]
     Dosage: UNK, UNKNOWN
     Route: 065
  2. CYMBALTA [Suspect]
     Dosage: UNK, UNKNOWN
     Route: 065
  3. CELEXA [Concomitant]
     Dosage: UNK, UNKNOWN
     Route: 065
  4. TRAZODONE [Concomitant]
     Dosage: UNK, UNKNOWN
     Route: 065

REACTIONS (1)
  - SEROTONIN SYNDROME [None]
